FAERS Safety Report 5863923-2 (Version None)
Quarter: 2008Q3

REPORT INFORMATION
  Report Type: 
  Country: None (occurrence: None)
  Receive Date: 20080829
  Receipt Date: 20080822
  Transmission Date: 20090109
  Serious: Yes (Death)
  Sender: FDA-Public Use
  Company Number: US-BAYER-200823910GPV

PATIENT
  Age: 63 Year
  Sex: Male
  Weight: 72 kg

DRUGS (7)
  1. CAMPATH [Suspect]
     Indication: CHRONIC LYMPHOCYTIC LEUKAEMIA
     Route: 042
     Dates: start: 20080408
  2. CAMPATH [Suspect]
     Route: 042
     Dates: start: 20080415, end: 20080710
  3. FLUDARA [Suspect]
     Indication: CHRONIC LYMPHOCYTIC LEUKAEMIA
     Route: 042
     Dates: start: 20080415, end: 20080710
  4. NITROGLYCERIN [Concomitant]
     Dates: start: 20080727, end: 20080729
  5. RIBOXIN [Concomitant]
     Dates: start: 20080727, end: 20080729
  6. ASPIRIN [Concomitant]
     Dates: start: 20080727, end: 20080729
  7. PANANGIN [Concomitant]
     Dates: start: 20080727, end: 20080729

REACTIONS (1)
  - DEATH [None]
